FAERS Safety Report 25308695 (Version 4)
Quarter: 2025Q3

REPORT INFORMATION
  Report Type: Spontaneous
  Country: US (occurrence: US)
  Receive Date: 20250513
  Receipt Date: 20250820
  Transmission Date: 20251020
  Serious: No
  Sender: SANOFI AVENTIS
  Company Number: US-SA-2025SA129922

PATIENT
  Age: 74 Year
  Sex: Female

DRUGS (2)
  1. DUPIXENT [Suspect]
     Active Substance: DUPILUMAB
     Indication: Chronic obstructive pulmonary disease
     Dosage: 300 MG, QOW
     Route: 058
     Dates: start: 202503
  2. OFEV [Suspect]
     Active Substance: NINTEDANIB

REACTIONS (10)
  - Vomiting [Not Recovered/Not Resolved]
  - Bronchitis [Recovering/Resolving]
  - Cough [Not Recovered/Not Resolved]
  - Rhinorrhoea [Not Recovered/Not Resolved]
  - Rebound effect [Not Recovered/Not Resolved]
  - Wheezing [Recovering/Resolving]
  - Secretion discharge [Not Recovered/Not Resolved]
  - Rebound effect [Not Recovered/Not Resolved]
  - Drug dose omission by device [Not Recovered/Not Resolved]
  - Device defective [Unknown]

NARRATIVE: CASE EVENT DATE: 20250101
